FAERS Safety Report 8268080-3 (Version None)
Quarter: 2012Q2

REPORT INFORMATION
  Report Type: 
  Country: None (occurrence: None)
  Receive Date: 20120409
  Receipt Date: 20120405
  Transmission Date: 20120825
  Serious: Yes (Death, Hospitalization)
  Sender: FDA-Public Use
  Company Number: IE-ASTRAZENECA-2012SE19536

PATIENT
  Age: 62 Year
  Sex: Female
  Weight: 59.3 kg

DRUGS (16)
  1. VIMOVO [Suspect]
     Indication: BACK PAIN
     Dosage: BD
     Route: 048
     Dates: start: 20120213
  2. SERTRALINE HYDROCHLORIDE [Concomitant]
     Route: 048
     Dates: start: 20120118
  3. GAVISCON [Concomitant]
     Dates: start: 20040720
  4. FLUTICASONE PROPIONATE/SALMETEROL [Concomitant]
     Dates: start: 20100301
  5. FELDENE [Concomitant]
     Dates: start: 20020923
  6. PERINDOPRIL ERBUMINE [Concomitant]
     Dates: start: 20100624
  7. INDAPAMIDE [Concomitant]
     Dosage: 1.5
     Dates: start: 20060103
  8. SERTRALINE HYDROCHLORIDE [Concomitant]
     Indication: DEPRESSION
     Route: 048
     Dates: start: 20110802
  9. MAXIDEX [Concomitant]
     Dates: start: 20040820
  10. AQUEOUS CREAM [Concomitant]
  11. TIOTROPIUM BROMIDE [Concomitant]
     Dates: start: 20100624
  12. ROSUVASTATIN [Concomitant]
     Dates: start: 20100624
  13. NOCTAMID [Concomitant]
     Dates: start: 20080714
  14. LEVOTHYROXINE SODIUM [Concomitant]
     Dates: start: 20090416
  15. DIAZEPAM [Concomitant]
     Dates: start: 20110831
  16. ALBUTEROL [Concomitant]
     Dates: start: 20090209

REACTIONS (1)
  - INTESTINAL PERFORATION [None]
